FAERS Safety Report 21237102 (Version 1)
Quarter: 2022Q3

REPORT INFORMATION
  Report Type: Spontaneous
  Country: US (occurrence: US)
  Receive Date: 20220822
  Receipt Date: 20220822
  Transmission Date: 20221027
  Serious: Yes (Other)
  Sender: FDA-Public Use
  Company Number: US-CIPLA LTD.-2022US05006

PATIENT
  Age: 68 Year
  Sex: Male

DRUGS (6)
  1. AMANTADINE [Suspect]
     Active Substance: AMANTADINE
     Indication: Progressive supranuclear palsy
     Dosage: UNK
     Route: 065
  2. AMANTADINE [Suspect]
     Active Substance: AMANTADINE
     Indication: Cerebral atrophy
  3. AMANTADINE [Suspect]
     Active Substance: AMANTADINE
     Indication: Cerebral small vessel ischaemic disease
  4. LEVODOPA [Suspect]
     Active Substance: LEVODOPA
     Indication: Progressive supranuclear palsy
     Dosage: UNK
     Route: 065
  5. LEVODOPA [Suspect]
     Active Substance: LEVODOPA
     Indication: Cerebral atrophy
  6. LEVODOPA [Suspect]
     Active Substance: LEVODOPA
     Indication: Cerebral small vessel ischaemic disease

REACTIONS (1)
  - Drug intolerance [Unknown]
